FAERS Safety Report 17945418 (Version 40)
Quarter: 2024Q3

REPORT INFORMATION
  Report Type: Report from Study
  Country: CH (occurrence: CH)
  Receive Date: 20200626
  Receipt Date: 20240921
  Transmission Date: 20241017
  Serious: Yes (Death, Hospitalization, Other)
  Sender: ABBVIE
  Company Number: CH-ABBVIE-20K-151-3275823-00

PATIENT
  Age: 71 Year
  Sex: Male
  Weight: 108 kg

DRUGS (52)
  1. VENETOCLAX [Suspect]
     Active Substance: VENETOCLAX
     Indication: Chronic lymphocytic leukaemia
     Route: 048
     Dates: start: 20200129, end: 20200204
  2. VENETOCLAX [Suspect]
     Active Substance: VENETOCLAX
     Indication: Chronic lymphocytic leukaemia
     Route: 048
     Dates: start: 20200205, end: 20200211
  3. VENETOCLAX [Suspect]
     Active Substance: VENETOCLAX
     Indication: Chronic lymphocytic leukaemia
     Route: 048
     Dates: start: 20200212, end: 20200218
  4. VENETOCLAX [Suspect]
     Active Substance: VENETOCLAX
     Indication: Chronic lymphocytic leukaemia
     Route: 048
     Dates: start: 20200219, end: 20200225
  5. VENETOCLAX [Suspect]
     Active Substance: VENETOCLAX
     Indication: Chronic lymphocytic leukaemia
     Route: 048
     Dates: start: 20200226, end: 20200303
  6. VENETOCLAX [Suspect]
     Active Substance: VENETOCLAX
     Indication: Chronic lymphocytic leukaemia
     Route: 048
     Dates: start: 20200304, end: 20200625
  7. VENETOCLAX [Suspect]
     Active Substance: VENETOCLAX
     Indication: Chronic lymphocytic leukaemia
     Route: 048
     Dates: start: 20200630, end: 20201124
  8. VENETOCLAX [Suspect]
     Active Substance: VENETOCLAX
     Indication: Chronic lymphocytic leukaemia
     Route: 048
     Dates: start: 20201125, end: 20210106
  9. VENETOCLAX [Suspect]
     Active Substance: VENETOCLAX
     Indication: Chronic lymphocytic leukaemia
     Route: 048
     Dates: start: 20210107, end: 20210424
  10. VENETOCLAX [Suspect]
     Active Substance: VENETOCLAX
     Indication: Chronic lymphocytic leukaemia
     Route: 048
     Dates: start: 20210512, end: 20210513
  11. VENETOCLAX [Suspect]
     Active Substance: VENETOCLAX
     Indication: Chronic lymphocytic leukaemia
     Route: 048
     Dates: start: 20210513, end: 20220119
  12. VENETOCLAX [Suspect]
     Active Substance: VENETOCLAX
     Indication: Chronic lymphocytic leukaemia
     Route: 048
  13. CLEMASTINE FUMARATE [Concomitant]
     Active Substance: CLEMASTINE FUMARATE
     Indication: Product used for unknown indication
     Route: 042
  14. CALCIUM\CHOLECALCIFEROL [Concomitant]
     Active Substance: CALCIUM\CHOLECALCIFEROL
     Indication: Product used for unknown indication
     Dosage: 500 MILLIGRAM DAILY
  15. CALCIUM\CHOLECALCIFEROL [Concomitant]
     Active Substance: CALCIUM\CHOLECALCIFEROL
     Indication: Product used for unknown indication
     Dosage: 500 MILLIGRAM DAILY
  16. CALCIUM\CHOLECALCIFEROL [Concomitant]
     Active Substance: CALCIUM\CHOLECALCIFEROL
     Indication: Product used for unknown indication
     Dosage: 500 MILLIGRAM DAILY
     Route: 048
  17. DAFALGAN [Concomitant]
     Active Substance: ACETAMINOPHEN
     Indication: Product used for unknown indication
     Dosage: 1000 MILLIGRAM?AS NEEDED
     Route: 048
  18. MAKATUSSIN [Concomitant]
     Indication: Product used for unknown indication
     Dosage: 2500 MILLIGRAM
     Route: 048
     Dates: end: 20210121
  19. PANTOPRAZOLE SODIUM [Concomitant]
     Active Substance: PANTOPRAZOLE SODIUM
     Indication: Product used for unknown indication
     Dosage: 40 MILLIGRAM
     Route: 048
  20. ENOXAPARIN SODIUM [Concomitant]
     Active Substance: ENOXAPARIN SODIUM
     Indication: Thrombosis prophylaxis
     Dosage: 40 MG/0.4 ML
     Dates: start: 20220221, end: 20220223
  21. ENOXAPARIN SODIUM [Concomitant]
     Active Substance: ENOXAPARIN SODIUM
     Indication: Thrombosis prophylaxis
     Dosage: 40 MG/0.4 ML
     Dates: start: 20220224, end: 20220225
  22. CYKLOKAPRON [Concomitant]
     Active Substance: TRANEXAMIC ACID
     Indication: Product used for unknown indication
     Dosage: DAILY
     Route: 048
     Dates: start: 20190529, end: 20200314
  23. PRIVIGEN [Concomitant]
     Active Substance: HUMAN IMMUNOGLOBULIN G
     Indication: Product used for unknown indication
     Route: 042
     Dates: end: 20200610
  24. OXYMETAZOLINE [Concomitant]
     Active Substance: OXYMETAZOLINE
     Indication: Product used for unknown indication
     Route: 003
     Dates: start: 20201110, end: 20201110
  25. TIOTROPIUM [Concomitant]
     Active Substance: TIOTROPIUM
     Indication: Product used for unknown indication
     Route: 055
  26. ZOMETA [Concomitant]
     Active Substance: ZOLEDRONIC ACID
     Indication: Product used for unknown indication
     Dosage: UNKNOWN
     Route: 042
     Dates: start: 20210813
  27. CEFEPIME [Concomitant]
     Active Substance: CEFEPIME HYDROCHLORIDE
     Indication: Infection
     Dosage: TOTAL DOSE OF 1G
     Route: 048
     Dates: start: 20220304, end: 20220304
  28. CEFEPIME [Concomitant]
     Active Substance: CEFEPIME HYDROCHLORIDE
     Indication: Infection
     Dosage: TOTAL DOSE OF 3G
     Route: 048
     Dates: start: 20220222, end: 20220224
  29. CEFEPIME [Concomitant]
     Active Substance: CEFEPIME HYDROCHLORIDE
     Indication: Infection
     Dosage: TOTAL DOSE OF 4G
     Route: 048
     Dates: start: 20220221, end: 20220221
  30. CEFEPIME [Concomitant]
     Active Substance: CEFEPIME HYDROCHLORIDE
     Indication: Infection
     Dosage: TOTAL DOSE OF 3G
     Route: 048
     Dates: start: 20220303, end: 20220303
  31. CEFEPIME [Concomitant]
     Active Substance: CEFEPIME HYDROCHLORIDE
     Indication: Infection
     Dosage: TOTAL DOSE OF 6G
     Route: 048
     Dates: start: 20220220, end: 20220220
  32. PULMICORT TURBUHALER [Concomitant]
     Active Substance: BUDESONIDE
     Indication: Respiratory failure
     Dosage: TIME INTERVAL: 0.33333333 DAYS: 0.5 MG/2ML
     Route: 055
     Dates: start: 20220222, end: 20220225
  33. PRIVIGEN [Concomitant]
     Active Substance: HUMAN IMMUNOGLOBULIN G
     Indication: Product used for unknown indication
     Route: 042
     Dates: end: 20200610
  34. BACTRIM [Concomitant]
     Active Substance: SULFAMETHOXAZOLE\TRIMETHOPRIM
     Indication: Product used for unknown indication
     Dosage: 800/160 MILLIGRAM?EVERY 2ND DAY IN THE MORNING
     Route: 048
     Dates: start: 20190920
  35. TRANEXAMIC ACID [Concomitant]
     Active Substance: TRANEXAMIC ACID
     Indication: Product used for unknown indication
     Dosage: IF NEEDED
     Route: 003
  36. TRANEXAMIC ACID [Concomitant]
     Active Substance: TRANEXAMIC ACID
     Indication: Product used for unknown indication
     Dosage: IF NEEDED
     Route: 003
  37. TRANEXAMIC ACID [Concomitant]
     Active Substance: TRANEXAMIC ACID
     Indication: Product used for unknown indication
     Dosage: AS NEEDED
     Route: 003
     Dates: end: 20210314
  38. WILLFACT [Concomitant]
     Indication: Product used for unknown indication
     Route: 042
     Dates: end: 20200311
  39. AMOXICILLIN\CLAVULANATE POTASSIUM [Concomitant]
     Active Substance: AMOXICILLIN\CLAVULANATE POTASSIUM
     Indication: Infection
     Route: 048
     Dates: start: 20220225, end: 20220225
  40. Bepanthen [Concomitant]
     Indication: Product used for unknown indication
     Dosage: NASAL OINTMENT?UNKNOWN
     Route: 003
  41. ALLOPURINOL [Concomitant]
     Active Substance: ALLOPURINOL
     Indication: Product used for unknown indication
     Dosage: 300 MILLIGRAM?DAILY
     Route: 048
     Dates: start: 20210129, end: 20210306
  42. VALSARTAN [Concomitant]
     Active Substance: VALSARTAN
     Indication: Product used for unknown indication
     Dosage: DAILY
     Route: 048
     Dates: end: 20200707
  43. NOVORAPID [Concomitant]
     Active Substance: INSULIN ASPART
     Indication: Product used for unknown indication
     Dosage: IF NEEDED
     Route: 058
     Dates: end: 20210721
  44. LANTUS [Concomitant]
     Active Substance: INSULIN GLARGINE
     Indication: Product used for unknown indication
     Dosage: DAILY
     Route: 058
     Dates: end: 20200627
  45. AMLODIPINE BESYLATE [Concomitant]
     Active Substance: AMLODIPINE BESYLATE
     Indication: Product used for unknown indication
     Dosage: IF NEEDED
     Route: 048
     Dates: end: 20200705
  46. AMLODIPINE BESYLATE [Concomitant]
     Active Substance: AMLODIPINE BESYLATE
     Indication: Product used for unknown indication
     Dosage: IF NEEDED
     Route: 048
     Dates: end: 20200705
  47. AMLODIPINE BESYLATE [Concomitant]
     Active Substance: AMLODIPINE BESYLATE
     Indication: Product used for unknown indication
     Dosage: AS NEEDED
     Route: 048
     Dates: end: 20200705
  48. SOLU-MEDROL [Concomitant]
     Active Substance: METHYLPREDNISOLONE SODIUM SUCCINATE
     Indication: Product used for unknown indication
     Route: 042
     Dates: end: 20200505
  49. Bausch+Lomb Nasal [Concomitant]
     Indication: Product used for unknown indication
     Dosage: AS NEEDED/TOPIC NASAL OINTMENT
     Route: 003
     Dates: end: 20201110
  50. DEXPANTHENOL [Concomitant]
     Active Substance: DEXPANTHENOL
     Indication: Product used for unknown indication
     Dosage: DAILY
     Route: 003
  51. TAMSULOSIN HYDROCHLORIDE [Concomitant]
     Active Substance: TAMSULOSIN HYDROCHLORIDE
     Indication: Product used for unknown indication
     Dosage: RETARD?DAILY
     Route: 048
  52. JADENU [Concomitant]
     Active Substance: DEFERASIROX
     Indication: Prophylaxis
     Route: 048

REACTIONS (48)
  - COVID-19 [Fatal]
  - Fatigue [Unknown]
  - Infection [Recovering/Resolving]
  - Infection [Recovered/Resolved]
  - General physical health deterioration [Recovering/Resolving]
  - Cardiac failure [Recovered/Resolved]
  - Pneumonia [Unknown]
  - Constipation [Unknown]
  - Oedema peripheral [Unknown]
  - Bronchitis [Unknown]
  - Weight increased [Recovered/Resolved]
  - Neutrophil count increased [Unknown]
  - Haemorrhage [Recovered/Resolved]
  - Infection [Recovered/Resolved]
  - Anaemia [Unknown]
  - Hypotension [Recovered/Resolved]
  - Arrhythmia [Recovered/Resolved]
  - Dyspnoea exertional [Unknown]
  - Weight decreased [Unknown]
  - Decreased appetite [Unknown]
  - Arthralgia [Recovered/Resolved]
  - Rib fracture [Recovering/Resolving]
  - Lymphadenopathy [Not Recovered/Not Resolved]
  - Pulmonary embolism [Unknown]
  - Transfusion reaction [Recovered/Resolved]
  - Blood disorder [Unknown]
  - Dyspepsia [Recovered/Resolved]
  - Blood beta-D-glucan positive [Unknown]
  - Infection [Recovered/Resolved]
  - Rales [Recovered/Resolved]
  - Hypokalaemia [Unknown]
  - Weight decreased [Recovered/Resolved]
  - Arrhythmia [Recovered/Resolved]
  - Hypokalaemia [Recovered/Resolved]
  - Constipation [Not Recovered/Not Resolved]
  - Oedema peripheral [Not Recovered/Not Resolved]
  - Pyrexia [Not Recovered/Not Resolved]
  - Taste disorder [Unknown]
  - Atypical pneumonia [Unknown]
  - Pyrexia [Recovered/Resolved]
  - Pyrexia [Recovered/Resolved]
  - Diarrhoea [Recovered/Resolved]
  - Insomnia [Unknown]
  - Nausea [Unknown]
  - Fatigue [Recovered/Resolved]
  - Nausea [Unknown]
  - Neutropenia [Unknown]
  - Pneumonia [Fatal]

NARRATIVE: CASE EVENT DATE: 20200101
